FAERS Safety Report 19716760 (Version 1)
Quarter: 2021Q3

REPORT INFORMATION
  Report Type: Spontaneous
  Country: US (occurrence: US)
  Receive Date: 20210819
  Receipt Date: 20210819
  Transmission Date: 20211014
  Serious: No
  Sender: FDA-Public Use
  Company Number: US-IPSEN BIOPHARMACEUTICALS, INC.-2021-19838

PATIENT
  Age: 50 Year
  Sex: Male

DRUGS (4)
  1. VITAMINS [Concomitant]
     Active Substance: VITAMINS
  2. DYSPORT [Suspect]
     Active Substance: ABOBOTULINUMTOXINA
     Indication: SKIN WRINKLING
     Dosage: 25 IU (GLABELLA?10 UNITS, FRONTALIS?15 UNITS)
     Route: 030
     Dates: start: 20210625, end: 20210625
  3. DYSPORT [Suspect]
     Active Substance: ABOBOTULINUMTOXINA
     Indication: SKIN WRINKLING
  4. DYSPORT [Suspect]
     Active Substance: ABOBOTULINUMTOXINA
     Indication: OFF LABEL USE

REACTIONS (10)
  - Off label use [Unknown]
  - Product storage error [Unknown]
  - Fatigue [Unknown]
  - Muscle twitching [Unknown]
  - Product preparation error [Unknown]
  - Muscular weakness [Unknown]
  - Dizziness [Unknown]
  - Muscle spasms [Unknown]
  - Vertigo [Unknown]
  - Tremor [Unknown]

NARRATIVE: CASE EVENT DATE: 20210625
